FAERS Safety Report 8445305-2 (Version None)
Quarter: 2012Q2

REPORT INFORMATION
  Report Type: 
  Country: None (occurrence: None)
  Receive Date: 20120612
  Receipt Date: 20120612
  Transmission Date: 20120825
  Serious: Yes (Death)
  Sender: FDA-Public Use
  Company Number: None

PATIENT
  Age: 65 Year
  Sex: Male
  Weight: 77.1115 kg

DRUGS (1)
  1. PRADAXA [Suspect]
     Indication: IMPLANTABLE DEFIBRILLATOR INSERTION

REACTIONS (2)
  - CARDIAC ARREST [None]
  - HAEMORRHAGE [None]
